FAERS Safety Report 8457897-8 (Version None)
Quarter: 2012Q2

REPORT INFORMATION
  Report Type: 
  Country: None (occurrence: None)
  Receive Date: 20120618
  Receipt Date: 20120618
  Transmission Date: 20120825
  Serious: Yes (Hospitalization, Other)
  Sender: FDA-Public Use
  Company Number: None

PATIENT
  Sex: Female

DRUGS (2)
  1. CELEBREX [Suspect]
     Indication: INFLAMMATION
     Dosage: 200 MG ONCE A DAY PO
     Route: 048
     Dates: start: 20120608, end: 20120608
  2. ZYRTEC [Concomitant]

REACTIONS (11)
  - RASH ERYTHEMATOUS [None]
  - PRURITUS [None]
  - ERYTHEMA [None]
  - TREMOR [None]
  - HEADACHE [None]
  - ABDOMINAL PAIN UPPER [None]
  - DIARRHOEA [None]
  - PAIN [None]
  - OEDEMA PERIPHERAL [None]
  - HYPERHIDROSIS [None]
  - FEELING HOT [None]
